FAERS Safety Report 16167440 (Version 2)
Quarter: 2019Q3

REPORT INFORMATION
  Report Type: Spontaneous
  Country: US (occurrence: US)
  Receive Date: 20190408
  Receipt Date: 20190711
  Transmission Date: 20191004
  Serious: Yes (Other)
  Sender: FDA-Public Use
  Company Number: US-GLAXOSMITHKLINE-US2019057204

PATIENT
  Age: 41 Year
  Sex: Female

DRUGS (2)
  1. BENLYSTA [Suspect]
     Active Substance: BELIMUMAB
     Indication: SYSTEMIC LUPUS ERYTHEMATOSUS
     Dosage: UNK
     Route: 058
  2. METHOTREXATE. [Concomitant]
     Active Substance: METHOTREXATE
     Indication: PRODUCT USED FOR UNKNOWN INDICATION
     Dosage: UNK

REACTIONS (13)
  - Neuralgia [Unknown]
  - Injection site pain [Unknown]
  - Rash [Unknown]
  - Systemic lupus erythematosus [Unknown]
  - Nausea [Unknown]
  - Pleurisy [Unknown]
  - Underdose [Unknown]
  - Exposure via skin contact [Unknown]
  - Asthenia [Unknown]
  - Device malfunction [Unknown]
  - Skin discolouration [Unknown]
  - Overdose [Unknown]
  - Wrong technique in device usage process [Unknown]

NARRATIVE: CASE EVENT DATE: 2019
